FAERS Safety Report 8776600 (Version 1)
Quarter: 2012Q4

REPORT INFORMATION
  Report Type: 
  Country: ZA (occurrence: ZA)
  Receive Date: 20120910
  Receipt Date: 20120910
  Transmission Date: 20130627
  Serious: Yes (Death, Other)
  Sender: FDA-Public Use
  Company Number: PHHY2008ZA044228

PATIENT
  Sex: Male

DRUGS (1)
  1. GLIVEC [Suspect]
     Dosage: UNK
     Dates: start: 20080916

REACTIONS (2)
  - Death [Fatal]
  - Chronic myeloid leukaemia transformation [Unknown]
